FAERS Safety Report 4576677-7 (Version None)
Quarter: 2005Q1

REPORT INFORMATION
  Report Type: 
  Country: None (occurrence: None)
  Receive Date: 20050210
  Receipt Date: 20050131
  Transmission Date: 20050727
  Serious: Yes (Other)
  Sender: FDA-Public Use
  Company Number: AU-NOVOPROD-241944

PATIENT
  Age: 64 Year
  Sex: Female

DRUGS (2)
  1. MIXTARD 20/80 NOVOLET [Suspect]
     Indication: DIABETES MELLITUS
  2. MIXTARD HUMAN 70/30 [Suspect]
     Indication: DIABETES MELLITUS

REACTIONS (2)
  - EYE DISORDER [None]
  - RENAL FAILURE [None]
